FAERS Safety Report 10427056 (Version 6)
Quarter: 2018Q3

REPORT INFORMATION
  Report Type: Report from Study
  Country: BR (occurrence: BR)
  Receive Date: 20140903
  Receipt Date: 20180903
  Transmission Date: 20181010
  Serious: Yes (Hospitalization, Other)
  Sender: FDA-Public Use
  Company Number: PHHY2014BR025597

PATIENT
  Age: 34 Year
  Sex: Female
  Weight: 57 kg

DRUGS (9)
  1. EXJADE [Suspect]
     Active Substance: DEFERASIROX
     Dosage: 10 MG/KG, QD (AT NIGHT)
     Route: 048
     Dates: end: 201509
  2. EXJADE [Suspect]
     Active Substance: DEFERASIROX
     Dosage: UNK
     Route: 048
     Dates: start: 201803
  3. FOLIC ACID. [Concomitant]
     Active Substance: FOLIC ACID
     Indication: SICKLE CELL ANAEMIA
     Dosage: 1 DF, QD
     Route: 048
  4. EXJADE [Suspect]
     Active Substance: DEFERASIROX
     Dosage: 10 MG/KG, QD (500 MG PER DAY, IN THE MORNING
     Route: 048
  5. EXJADE [Suspect]
     Active Substance: DEFERASIROX
     Dosage: 3 TABLETS DAILY
     Route: 048
     Dates: end: 201804
  6. EXJADE [Suspect]
     Active Substance: DEFERASIROX
     Dosage: 25 MG/KG, QD (3 TABLETS DAILY)
     Route: 048
     Dates: start: 201212, end: 201303
  7. EXJADE [Suspect]
     Active Substance: DEFERASIROX
     Indication: SICKLE CELL ANAEMIA
     Dosage: 1500 MG, QD
     Route: 048
     Dates: start: 2012
  8. EXJADE [Suspect]
     Active Substance: DEFERASIROX
     Dosage: 20 MG/KG, QD (2 TABLETS DAILY)
     Route: 048
     Dates: start: 201210, end: 201212
  9. EXJADE [Suspect]
     Active Substance: DEFERASIROX
     Dosage: 25 MG/KG, QD (3 TABLETS DAILY)
     Route: 048
     Dates: start: 201401

REACTIONS (9)
  - Diarrhoea [Recovered/Resolved]
  - Haemoglobin decreased [Not Recovered/Not Resolved]
  - Therapy non-responder [Unknown]
  - Yellow skin [Not Recovered/Not Resolved]
  - Jaundice [Recovered/Resolved]
  - Drug ineffective [Unknown]
  - Pyrexia [Recovered/Resolved]
  - Serum ferritin increased [Not Recovered/Not Resolved]
  - Proteinuria [Recovering/Resolving]

NARRATIVE: CASE EVENT DATE: 201212
